FAERS Safety Report 5114320-9 (Version None)
Quarter: 2006Q3

REPORT INFORMATION
  Report Type: 
  Country: None (occurrence: None)
  Receive Date: 20060925
  Receipt Date: 20060804
  Transmission Date: 20061208
  Serious: Yes (Hospitalization)
  Sender: FDA-Public Use
  Company Number: FR-MERCK-0608FRA00010

PATIENT
  Age: 79 Year
  Sex: Female

DRUGS (5)
  1. VYTORIN [Suspect]
     Indication: HYPERCHOLESTEROLAEMIA
     Route: 048
     Dates: start: 20060707, end: 20060723
  2. AMLODIPINE BESYLATE [Concomitant]
     Route: 048
     Dates: end: 20060724
  3. RAMIPRIL [Concomitant]
     Indication: HYPERTENSION
     Route: 048
     Dates: end: 20060724
  4. ASPIRIN LYSINE [Concomitant]
     Route: 048
     Dates: end: 20060724
  5. ESOMEPRAZOLE MAGNESIUM [Concomitant]
     Route: 048
     Dates: end: 20060724

REACTIONS (2)
  - DRUG INEFFECTIVE [None]
  - IDIOPATHIC THROMBOCYTOPENIC PURPURA [None]
